FAERS Safety Report 18479352 (Version 1)
Quarter: 2020Q4

REPORT INFORMATION
  Report Type: Other
  Country: CN (occurrence: CN)
  Receive Date: 20201109
  Receipt Date: 20201109
  Transmission Date: 20210114
  Serious: Yes (Other)
  Sender: FDA-Public Use
  Company Number: CN-ROCHE-2707004

PATIENT
  Sex: Female

DRUGS (1)
  1. TRASTUZUMAB. [Suspect]
     Active Substance: TRASTUZUMAB
     Indication: BREAST CANCER
     Route: 042

REACTIONS (7)
  - Sinus tachycardia [Unknown]
  - Chest discomfort [Unknown]
  - Atrioventricular block [Unknown]
  - Dyspnoea [Unknown]
  - Palpitations [Unknown]
  - Electrocardiogram ST segment abnormal [Unknown]
  - Sinus bradycardia [Unknown]
